FAERS Safety Report 7586918-X (Version None)
Quarter: 2011Q2

REPORT INFORMATION
  Report Type: 
  Country: None (occurrence: None)
  Receive Date: 20110603
  Receipt Date: 20110221
  Transmission Date: 20111010
  Serious: Yes (Disabling)
  Sender: FDA-Public Use
  Company Number: 2011SP008195

PATIENT
  Age: 26 Year
  Sex: Female

DRUGS (4)
  1. ADDERALL 10 [Concomitant]
  2. TRILEPTAL [Concomitant]
  3. SEROQUEL [Concomitant]
  4. SAPHRIS [Suspect]
     Indication: MOOD DISORDER DUE TO A GENERAL MEDICAL CONDITION
     Dates: start: 20110101, end: 20110219

REACTIONS (3)
  - UNDERDOSE [None]
  - INAPPROPRIATE SCHEDULE OF DRUG ADMINISTRATION [None]
  - CONVULSION [None]
